FAERS Safety Report 5710755-1 (Version None)
Quarter: 2008Q2

REPORT INFORMATION
  Report Type: 
  Country: None (occurrence: None)
  Receive Date: 20080421
  Receipt Date: 20080405
  Transmission Date: 20081010
  Serious: Yes (Hospitalization, Other)
  Sender: FDA-Public Use
  Company Number: US-BAYER-200816298GPV

PATIENT
  Age: 42 Year
  Sex: Male

DRUGS (1)
  1. MAGNEVIST [Suspect]
     Indication: RENAL FAILURE
     Route: 065
     Dates: start: 20060101

REACTIONS (5)
  - JOINT CONTRACTURE [None]
  - NEPHROGENIC SYSTEMIC FIBROSIS [None]
  - OEDEMA PERIPHERAL [None]
  - SKIN FIBROSIS [None]
  - SKIN INDURATION [None]
